FAERS Safety Report 22242552 (Version 1)
Quarter: 2023Q2

REPORT INFORMATION
  Report Type: Spontaneous
  Country: US (occurrence: None)
  Receive Date: 20230420
  Receipt Date: 20230420
  Transmission Date: 20230722
  Serious: Yes (Death)
  Sender: FDA-Public Use
  Company Number: None

PATIENT
  Age: 80 Year
  Sex: Male

DRUGS (26)
  1. CAPECITABINE [Suspect]
     Active Substance: CAPECITABINE
     Indication: Colorectal cancer
     Dosage: FREQUENCY : TWICE A DAY;?
     Route: 048
     Dates: start: 20230228
  2. PROAIR HFA [Concomitant]
     Active Substance: ALBUTEROL SULFATE
  3. AZELASTINE [Concomitant]
     Active Substance: AZELASTINE
  4. CLOBETASOL [Concomitant]
     Active Substance: CLOBETASOL
  5. EMOLLIENT CRM [Concomitant]
  6. DILTIAZEM [Concomitant]
     Active Substance: DILTIAZEM
  7. DOXAZOSIN [Concomitant]
     Active Substance: DOXAZOSIN MESYLATE
  8. FAMOTIDINE [Concomitant]
     Active Substance: FAMOTIDINE
  9. FERROUS FUMARATE [Concomitant]
     Active Substance: FERROUS FUMARATE
  10. FLUTICASONE [Concomitant]
     Active Substance: FLUTICASONE
  11. ACETAMINOPHEN\HYDROCODONE [Concomitant]
     Active Substance: ACETAMINOPHEN\HYDROCODONE
  12. TYLENOL [Concomitant]
     Active Substance: ACETAMINOPHEN
  13. FISH OIL [Concomitant]
     Active Substance: FISH OIL
  14. LORAZEPAM [Concomitant]
     Active Substance: LORAZEPAM
  15. LOSARTAN [Concomitant]
     Active Substance: LOSARTAN
  16. OMEPRAZOLE [Concomitant]
     Active Substance: OMEPRAZOLE
  17. REFRESH ARTFICIAL TEARS [Concomitant]
  18. VITAMIN B COMPLEX [Concomitant]
     Active Substance: CYANOCOBALAMIN\DEXPANTHENOL\NIACINAMIDE\PYRIDOXINE HYDROCHLORIDE\RIBOFLAVIN 5^-PHOSPHATE SODIUM\THIA
  19. XYZAL [Concomitant]
     Active Substance: LEVOCETIRIZINE DIHYDROCHLORIDE
  20. POTASSIUM CHLORIDE [Concomitant]
     Active Substance: POTASSIUM CHLORIDE
  21. PROMETHAZINE [Concomitant]
     Active Substance: PROMETHAZINE HYDROCHLORIDE
  22. ROSUVASTATIN [Concomitant]
     Active Substance: ROSUVASTATIN
  23. STIOL [Concomitant]
  24. RESPIMAT [Concomitant]
  25. VITAMIN B6 [Concomitant]
     Active Substance: PYRIDOXINE HYDROCHLORIDE
  26. OXALIPLATIN [Concomitant]
     Active Substance: OXALIPLATIN

REACTIONS (1)
  - Death [None]
